FAERS Safety Report 24209769 (Version 1)
Quarter: 2024Q3

REPORT INFORMATION
  Report Type: Spontaneous
  Country: US (occurrence: None)
  Receive Date: 20240813
  Receipt Date: 20240813
  Transmission Date: 20241017
  Serious: No
  Sender: Public
  Company Number: None

PATIENT
  Age: 37 Year
  Sex: Female
  Weight: 122.85 kg

DRUGS (5)
  1. FLONASE [Suspect]
     Active Substance: FLUTICASONE PROPIONATE
     Dates: start: 20240802, end: 20240813
  2. CELEBREX [Concomitant]
     Active Substance: CELECOXIB
  3. TREMFYA [Concomitant]
     Active Substance: GUSELKUMAB
  4. TYLENOL [Concomitant]
     Active Substance: ACETAMINOPHEN
  5. ALLEGRA [Concomitant]
     Active Substance: FEXOFENADINE HYDROCHLORIDE

REACTIONS (3)
  - Mood altered [None]
  - Agitation [None]
  - Suicidal ideation [None]

NARRATIVE: CASE EVENT DATE: 20240813
